FAERS Safety Report 6412106-6 (Version None)
Quarter: 2009Q4

REPORT INFORMATION
  Report Type: 
  Country: None (occurrence: None)
  Receive Date: 20091023
  Receipt Date: 20090511
  Transmission Date: 20100525
  Serious: Yes (Hospitalization)
  Sender: FDA-Public Use
  Company Number: FR-JNJFOC-20090502133

PATIENT
  Age: 78 Year
  Sex: Male

DRUGS (8)
  1. TAVANIC [Suspect]
     Indication: LUNG DISORDER
     Route: 048
  2. CLAMOXYL DUO FORTE [Suspect]
     Indication: LUNG DISORDER
     Route: 048
  3. PREVISCAN ((PENTOXIFYLLINE) [Concomitant]
     Route: 065
  4. BISOPROLOL [Concomitant]
     Route: 065
  5. PRAVASTATIN [Concomitant]
     Route: 065
  6. COVERSYL [Concomitant]
     Route: 065
  7. INDAPAMIDE [Concomitant]
     Route: 065
  8. AMIODARONE [Concomitant]
     Route: 065

REACTIONS (1)
  - CYTOLYTIC HEPATITIS [None]
